FAERS Safety Report 14536253 (Version 2)
Quarter: 2018Q1

REPORT INFORMATION
  Report Type: Spontaneous
  Country: SI (occurrence: SI)
  Receive Date: 20180215
  Receipt Date: 20180326
  Transmission Date: 20180509
  Serious: Yes (Other)
  Sender: FDA-Public Use
  Company Number: PHHY2018SI024295

PATIENT
  Sex: Male

DRUGS (19)
  1. ADALAT [Concomitant]
     Active Substance: NIFEDIPINE
     Indication: PRODUCT USED FOR UNKNOWN INDICATION
     Dosage: 30 MG, UNK
     Route: 065
     Dates: start: 20160214
  2. EDEMID [Suspect]
     Active Substance: FUROSEMIDE
     Indication: PRODUCT USED FOR UNKNOWN INDICATION
     Dosage: 1/4 TABLET + 0 + 40 MG
     Route: 065
     Dates: start: 20160214
  3. EDEMID [Suspect]
     Active Substance: FUROSEMIDE
     Dosage: 1/4 TABLET + 0 + 80 MG
     Route: 065
     Dates: start: 20160412
  4. PRENESSA [Concomitant]
     Active Substance: PERINDOPRIL
     Indication: PRODUCT USED FOR UNKNOWN INDICATION
     Dosage: 4 MG, BID (4+0+4)
     Route: 065
  5. EISENSULFAT [Concomitant]
     Indication: PRODUCT USED FOR UNKNOWN INDICATION
     Dosage: UNK
     Route: 065
     Dates: start: 20160214
  6. MONOSAN [Concomitant]
     Indication: PRODUCT USED FOR UNKNOWN INDICATION
     Dosage: 20 MG, BID
     Route: 065
     Dates: start: 20160214
  7. INSULIN [Concomitant]
     Active Substance: INSULIN NOS
     Indication: PRODUCT USED FOR UNKNOWN INDICATION
     Dosage: 30: 34 U IN THE MORNING AND 14 U IN THE EVENING
     Route: 065
     Dates: start: 20160214
  8. ENTRESTO [Suspect]
     Active Substance: SACUBITRIL\VALSARTAN
     Dosage: 100 MG (49/51 MG), UNK
     Route: 065
     Dates: start: 20160705
  9. ADALAT [Concomitant]
     Active Substance: NIFEDIPINE
     Dosage: 60 MG, UNK
     Route: 065
     Dates: start: 20160412
  10. LANITOP [Concomitant]
     Active Substance: METILDIGOXIN
     Indication: PRODUCT USED FOR UNKNOWN INDICATION
     Dosage: 1 DF, 5 DAYS IN A WEEK
     Route: 065
     Dates: start: 20160214
  11. XARELTO [Concomitant]
     Active Substance: RIVAROXABAN
     Indication: PRODUCT USED FOR UNKNOWN INDICATION
     Dosage: UNK
     Route: 065
     Dates: start: 20160214
  12. ENTRESTO [Suspect]
     Active Substance: SACUBITRIL\VALSARTAN
     Dosage: 50 MG (24/26 MG), UNK
     Route: 065
     Dates: start: 20160709
  13. AGLURAB [Concomitant]
     Active Substance: METFORMIN HYDROCHLORIDE
     Indication: PRODUCT USED FOR UNKNOWN INDICATION
     Dosage: 1000 MG, QD (BEFORE LUNCH)
     Route: 065
     Dates: start: 20160214
  14. EDEMID [Suspect]
     Active Substance: FUROSEMIDE
     Dosage: 80 MG + 0 + 40 MG (- 45 MG)
     Route: 065
     Dates: start: 20160709
  15. CRESTOR [Concomitant]
     Active Substance: ROSUVASTATIN CALCIUM
     Indication: PRODUCT USED FOR UNKNOWN INDICATION
     Dosage: 20 MG, QD (IN EVENING)
     Route: 065
     Dates: start: 20160214
  16. ENTRESTO [Suspect]
     Active Substance: SACUBITRIL\VALSARTAN
     Indication: PRODUCT USED FOR UNKNOWN INDICATION
     Dosage: 50 MG (24/26 MG), UNK
     Route: 065
     Dates: start: 20160214
  17. DILATREND [Concomitant]
     Active Substance: CARVEDILOL
     Indication: PRODUCT USED FOR UNKNOWN INDICATION
     Dosage: 3.125 MG, Q12H
     Route: 065
     Dates: start: 20160214
  18. ALDACTONE [Concomitant]
     Active Substance: SPIRONOLACTONE
     Indication: PRODUCT USED FOR UNKNOWN INDICATION
     Dosage: UNK
     Route: 065
     Dates: start: 20160214
  19. NITRO [Concomitant]
     Active Substance: NITROGLYCERIN
     Indication: PRODUCT USED FOR UNKNOWN INDICATION
     Dosage: UNK UNK, PRN
     Route: 065
     Dates: start: 20160214

REACTIONS (9)
  - Blood creatinine increased [Recovering/Resolving]
  - Arrhythmia [Unknown]
  - Dizziness [Unknown]
  - Oedema peripheral [Recovered/Resolved]
  - Blood pressure decreased [Recovered/Resolved]
  - Malaise [Unknown]
  - Cardiomegaly [Unknown]
  - Vertigo [Unknown]
  - Nausea [Unknown]

NARRATIVE: CASE EVENT DATE: 20160412
